FAERS Safety Report 7515506-6 (Version None)
Quarter: 2011Q2

REPORT INFORMATION
  Report Type: 
  Country: None (occurrence: None)
  Receive Date: 20110601
  Receipt Date: 20100712
  Transmission Date: 20111010
  Serious: Yes (Other)
  Sender: FDA-Public Use
  Company Number: US-PFIZER INC-2010054934

PATIENT
  Sex: Male

DRUGS (7)
  1. SPIRIVA [Concomitant]
     Indication: EMPHYSEMA
     Dosage: UNK
     Dates: start: 20080101
  2. CHANTIX [Suspect]
     Indication: SMOKING CESSATION THERAPY
     Dosage: UNK
     Dates: start: 20090501
  3. VALSARTAN [Concomitant]
     Indication: HYPERTENSION
     Dosage: UNK
     Dates: start: 20080101
  4. NEXIUM [Concomitant]
     Indication: GASTROOESOPHAGEAL REFLUX DISEASE
     Dosage: UNK
     Dates: start: 20080101
  5. LORTAB [Concomitant]
     Indication: PAIN
     Dosage: UNK
     Dates: start: 20080101
  6. SOMA [Concomitant]
     Indication: MUSCLE SPASMS
     Dosage: UNK
     Dates: start: 20080101
  7. SYMBICORT [Concomitant]
     Indication: CHRONIC OBSTRUCTIVE PULMONARY DISEASE
     Dosage: UNK
     Dates: start: 20080101

REACTIONS (5)
  - AGGRESSION [None]
  - SUICIDAL IDEATION [None]
  - DEPRESSION [None]
  - ANXIETY [None]
  - ANGER [None]
